FAERS Safety Report 9882718 (Version 2)
Quarter: 2014Q3

REPORT INFORMATION
  Report Type: Spontaneous
  Country: US (occurrence: US)
  Receive Date: 20140207
  Receipt Date: 20140826
  Transmission Date: 20150326
  Serious: Yes (Hospitalization, Other)
  Sender: FDA-Public Use
  Company Number: US-009507513-1402USA003489

PATIENT
  Sex: Female
  Weight: 92.97 kg

DRUGS (1)
  1. NUVARING [Suspect]
     Active Substance: ETHINYL ESTRADIOL\ETONOGESTREL
     Indication: CONTRACEPTION
     Dosage: 0.015-0.120 MG
     Route: 067

REACTIONS (6)
  - Skin lesion [Recovering/Resolving]
  - Anxiety [Unknown]
  - Contusion [Unknown]
  - Pulmonary embolism [Recovered/Resolved]
  - Activated partial thromboplastin time prolonged [Unknown]
  - Antiphospholipid antibodies positive [Unknown]

NARRATIVE: CASE EVENT DATE: 20070707
